FAERS Safety Report 9256662 (Version 3)
Quarter: 2013Q4

REPORT INFORMATION
  Report Type: Spontaneous
  Country: US (occurrence: US)
  Receive Date: 20130426
  Receipt Date: 20131227
  Transmission Date: 20140711
  Serious: Yes (Hospitalization, Disabling, Other)
  Sender: FDA-Public Use
  Company Number: US-ASTRAZENECA-2013SE27676

PATIENT
  Age: 58 Year
  Sex: Female
  Weight: 63.5 kg

DRUGS (30)
  1. NEXIUM [Suspect]
     Indication: GASTROOESOPHAGEAL REFLUX DISEASE
     Route: 048
     Dates: start: 2002
  2. NEXIUM [Suspect]
     Indication: GASTROOESOPHAGEAL REFLUX DISEASE
     Route: 048
     Dates: start: 200405
  3. NEXIUM [Suspect]
     Indication: GASTROOESOPHAGEAL REFLUX DISEASE
     Route: 048
     Dates: start: 20090624
  4. RANITIDINE [Concomitant]
     Dates: start: 20100108, end: 20100201
  5. TUMS [Concomitant]
     Indication: DYSPEPSIA
     Dosage: AS NEEDED
  6. SPIRIVA [Concomitant]
     Indication: CHRONIC OBSTRUCTIVE PULMONARY DISEASE
     Dosage: AS NEEDED
  7. ADVAIR [Concomitant]
     Indication: CHRONIC OBSTRUCTIVE PULMONARY DISEASE
     Dosage: AS NEEDED
  8. BONIVA [Concomitant]
     Indication: OSTEOPOROSIS
     Dosage: AS NEEDED
  9. FOSAMAX [Concomitant]
     Indication: OSTEOPOROSIS
     Dosage: AS NEEDED
  10. WELLBUTRIN [Concomitant]
     Indication: DEPRESSION
     Dosage: AS NEEDED
  11. AMITRIPTYLINE [Concomitant]
     Indication: DEPRESSION
     Route: 048
  12. ACTOS [Concomitant]
     Indication: DIABETES MELLITUS
     Dosage: AS NEEDED
  13. LANTUS [Concomitant]
     Indication: DIABETES MELLITUS
     Dosage: AS NEEDED
  14. FERROUS SULFATE [Concomitant]
     Indication: IRON DEFICIENCY
     Dosage: AS NEEDED
  15. LISINOPRIL [Concomitant]
     Indication: BLOOD PRESSURE ABNORMAL
     Dosage: AS NEEDED
  16. LISINOPRIL [Concomitant]
     Indication: BLOOD PRESSURE ABNORMAL
     Route: 048
  17. FOLIC ACID [Concomitant]
  18. LASIX [Concomitant]
  19. BENADRYL [Concomitant]
     Indication: PRURITUS
  20. XOPENEX [Concomitant]
     Dosage: AS NEEDED
  21. FLUOXETINE [Concomitant]
  22. AMLODIPINE BESYLATE [Concomitant]
  23. GLIPIZIDE [Concomitant]
     Dates: start: 20081204
  24. WELLBUTRIN SR [Concomitant]
  25. SPIRONOLACTONE [Concomitant]
  26. PREDNISONE [Concomitant]
  27. DEXAMETHASONE [Concomitant]
  28. METRONIDAZOLE [Concomitant]
  29. HYDROCODONE ACETAMINOPAN [Concomitant]
     Dates: start: 20110612
  30. CHLORDIAZEPOXIDE [Concomitant]
     Dates: start: 20080601

REACTIONS (16)
  - Hip fracture [Unknown]
  - Femoral neck fracture [Unknown]
  - Bone disorder [Unknown]
  - Contusion [Unknown]
  - Fall [Unknown]
  - Osteoporosis [Unknown]
  - Osteopenia [Unknown]
  - Arthritis [Unknown]
  - Chronic obstructive pulmonary disease [Unknown]
  - Glucose tolerance impaired [Unknown]
  - Wrist fracture [Unknown]
  - Type 2 diabetes mellitus [Unknown]
  - Body height decreased [Unknown]
  - Osteoarthritis [Unknown]
  - Foot fracture [Unknown]
  - Depression [Unknown]
